FAERS Safety Report 16579904 (Version 1)
Quarter: 2019Q3

REPORT INFORMATION
  Report Type: Spontaneous
  Country: FR (occurrence: FR)
  Receive Date: 20190716
  Receipt Date: 20190716
  Transmission Date: 20191004
  Serious: Yes (Hospitalization)
  Sender: FDA-Public Use
  Company Number: FR-TEVA-2019-FR-1077341

PATIENT
  Age: 2 Year
  Sex: Male
  Weight: 14 kg

DRUGS (2)
  1. VINCRISTINE TEVA [Suspect]
     Active Substance: VINCRISTINE
     Indication: LEUKAEMIA
     Dosage: 0.9 MILLIGRAM
     Route: 042
     Dates: start: 20190118, end: 20190208
  2. DEXAMETHASONE MYLAN [Suspect]
     Active Substance: DEXAMETHASONE
     Indication: LEUKAEMIA
     Dosage: 3.4 MILLIGRAM
     Route: 042
     Dates: start: 20190118, end: 20190214

REACTIONS (2)
  - Gait disturbance [Recovering/Resolving]
  - Amyotrophy [Unknown]

NARRATIVE: CASE EVENT DATE: 20190208
